FAERS Safety Report 5236300-5 (Version None)
Quarter: 2007Q1

REPORT INFORMATION
  Report Type: 
  Country: None (occurrence: None)
  Receive Date: 20070212
  Receipt Date: 20070126
  Transmission Date: 20070707
  Serious: Yes (Death, Hospitalization, Other)
  Sender: FDA-Public Use
  Company Number: US-PFIZER INC-2007007656

PATIENT
  Sex: Male
  Weight: 104.3 kg

DRUGS (1)
  1. BEXTRA [Suspect]
     Dates: start: 20020701, end: 20030701

REACTIONS (1)
  - MYOCARDIAL INFARCTION [None]
